FAERS Safety Report 16159930 (Version 1)
Quarter: 2019Q2

REPORT INFORMATION
  Report Type: Report from Study
  Country: US (occurrence: US)
  Receive Date: 20190404
  Receipt Date: 20190404
  Transmission Date: 20190711
  Serious: No
  Sender: FDA-Public Use
  Company Number: US-ALEXION PHARMACEUTICALS INC.-A201904908

PATIENT
  Sex: Female

DRUGS (1)
  1. SOLIRIS [Suspect]
     Active Substance: ECULIZUMAB
     Indication: PAROXYSMAL NOCTURNAL HAEMOGLOBINURIA
     Dosage: UNK, Q 14 DAYS
     Route: 042

REACTIONS (6)
  - Mean platelet volume decreased [Unknown]
  - Blood glucose increased [Unknown]
  - Fatigue [Unknown]
  - Adjusted calcium decreased [Unknown]
  - Oedema peripheral [Unknown]
  - Weight increased [Unknown]
